FAERS Safety Report 6631770-X (Version None)
Quarter: 2010Q1

REPORT INFORMATION
  Report Type: 
  Country: None (occurrence: None)
  Receive Date: 20100312
  Receipt Date: 20091104
  Transmission Date: 20100710
  Serious: Yes (Hospitalization)
  Sender: FDA-Public Use
  Company Number: AU-EISAI INC.-E3810-03287-SPO-AU

PATIENT
  Age: 35 Year
  Sex: Female

DRUGS (4)
  1. PARIET (RABEPRAZOLE) [Suspect]
     Indication: GASTROOESOPHAGEAL REFLUX DISEASE
     Route: 048
  2. EPILIM [Suspect]
     Dosage: UNKNOWN
  3. CIPRAMIL [Concomitant]
     Dosage: UNKNOWN
  4. PARIET (RABEPRAZOLE) [Concomitant]
     Dosage: UNKNOWN

REACTIONS (1)
  - PSYCHOTIC DISORDER [None]
